FAERS Safety Report 23216582 (Version 2)
Quarter: 2023Q4

REPORT INFORMATION
  Report Type: Spontaneous
  Country: US (occurrence: US)
  Receive Date: 20231122
  Receipt Date: 20231128
  Transmission Date: 20240108
  Serious: No
  Sender: FDA-Public Use
  Company Number: US-AMGEN-USASP2023208422

PATIENT
  Age: 78 Year
  Sex: Female

DRUGS (3)
  1. REPATHA [Suspect]
     Active Substance: EVOLOCUMAB
     Indication: Blood cholesterol abnormal
     Dosage: 140 MILLIGRAM, Q2WK
     Route: 058
  2. REPATHA [Suspect]
     Active Substance: EVOLOCUMAB
     Dosage: 140 MILLIGRAM, Q2WK
     Route: 058
  3. BRILINTA [Concomitant]
     Active Substance: TICAGRELOR
     Dosage: UNK

REACTIONS (4)
  - Injection site papule [Unknown]
  - Device difficult to use [Unknown]
  - Drug dose omission by device [Unknown]
  - Device use error [Unknown]

NARRATIVE: CASE EVENT DATE: 20230101
